FAERS Safety Report 25940867 (Version 2)
Quarter: 2025Q4

REPORT INFORMATION
  Report Type: Report from Study
  Country: US (occurrence: US)
  Receive Date: 20251020
  Receipt Date: 20251112
  Transmission Date: 20260118
  Serious: Yes (Hospitalization, Other)
  Sender: ABBVIE
  Company Number: US-ABBVIE-6508214

PATIENT
  Age: 57 Year
  Sex: Female

DRUGS (2)
  1. SKYRIZI [Suspect]
     Active Substance: RISANKIZUMAB-RZAA
     Indication: Crohn^s disease
     Route: 058
  2. SKYRIZI [Suspect]
     Active Substance: RISANKIZUMAB-RZAA
     Indication: Crohn^s disease
     Route: 042
     Dates: start: 20250725

REACTIONS (5)
  - Colectomy [Recovering/Resolving]
  - Nausea [Recovered/Resolved]
  - Abdominal pain [Recovered/Resolved]
  - Appendicectomy [Recovering/Resolving]
  - Intestinal resection [Recovering/Resolving]

NARRATIVE: CASE EVENT DATE: 20251006
